FAERS Safety Report 19949772 (Version 1)
Quarter: 2021Q4

REPORT INFORMATION
  Report Type: Spontaneous
  Country: DE (occurrence: DE)
  Receive Date: 20211013
  Receipt Date: 20211013
  Transmission Date: 20220303
  Serious: Yes (Other)
  Sender: FDA-Public Use
  Company Number: DE-BOEHRINGERINGELHEIM-2021-BI-131763

PATIENT
  Age: 65 Year
  Sex: Male

DRUGS (1)
  1. GILOTRIF [Suspect]
     Active Substance: AFATINIB
     Indication: Lung adenocarcinoma
     Dates: start: 201601, end: 201802

REACTIONS (3)
  - Malignant neoplasm progression [Unknown]
  - Malignant mediastinal neoplasm [Unknown]
  - EGFR gene mutation [Unknown]

NARRATIVE: CASE EVENT DATE: 20171201
